FAERS Safety Report 13986672 (Version 3)
Quarter: 2018Q2

REPORT INFORMATION
  Report Type: Spontaneous
  Country: JP (occurrence: JP)
  Receive Date: 20170919
  Receipt Date: 20180612
  Transmission Date: 20180711
  Serious: Yes (Death, Hospitalization)
  Sender: FDA-Public Use
  Company Number: JP-ACTELION-A-CH2017-159336

PATIENT
  Age: 66 Year
  Sex: Female

DRUGS (16)
  1. SELARA [Concomitant]
     Active Substance: EPLERENONE
  2. BISOPROLOL [Concomitant]
     Active Substance: BISOPROLOL
  3. CRESTOR [Concomitant]
     Active Substance: ROSUVASTATIN CALCIUM
  4. PREDONINE [Concomitant]
     Active Substance: PREDNISOLONE
  5. TAKELDA [Concomitant]
     Active Substance: ASPIRIN\LANSOPRAZOLE
  6. THYRADIN [Concomitant]
     Active Substance: LEVOTHYROXINE
  7. ALENDRONATE [Concomitant]
     Active Substance: ALENDRONATE SODIUM
  8. FUROSEMIDE. [Concomitant]
     Active Substance: FUROSEMIDE
  9. ENALAPRIL [Concomitant]
     Active Substance: ENALAPRIL
  10. FEBURIC [Concomitant]
     Active Substance: FEBUXOSTAT
  11. ASPARA POTASSIUM [Concomitant]
     Active Substance: POTASSIUM ASPARTATE
  12. UNIPHYL [Concomitant]
     Active Substance: THEOPHYLLINE ANHYDROUS
  13. OPSUMIT [Suspect]
     Active Substance: MACITENTAN
     Indication: PULMONARY ARTERIAL HYPERTENSION
     Dosage: 10 MG, QD
     Route: 048
     Dates: start: 20170526, end: 201708
  14. WARFARIN [Concomitant]
     Active Substance: WARFARIN
  15. VASOLAN [Concomitant]
     Active Substance: VERAPAMIL HYDROCHLORIDE
  16. PREDNISOLONE. [Concomitant]
     Active Substance: PREDNISOLONE

REACTIONS (2)
  - Sudden death [Fatal]
  - Atrial fibrillation [Recovered/Resolved]

NARRATIVE: CASE EVENT DATE: 201708
